FAERS Safety Report 25953006 (Version 2)
Quarter: 2025Q4

REPORT INFORMATION
  Report Type: Spontaneous
  Country: GB (occurrence: GB)
  Receive Date: 20251023
  Receipt Date: 20251203
  Transmission Date: 20260117
  Serious: Yes (Hospitalization, Other)
  Sender: MYLAN
  Company Number: GB-MYLANLABS-2025M1089537

PATIENT
  Sex: Male

DRUGS (1)
  1. CLOZARIL [Suspect]
     Active Substance: CLOZAPINE
     Indication: Schizophrenia
     Dosage: UNK (STOP DATE: ROUGHLY 21-SEP-2025)

REACTIONS (4)
  - Schizophrenia [Recovering/Resolving]
  - Mental impairment [Unknown]
  - Feeling abnormal [Unknown]
  - Treatment noncompliance [Unknown]
